FAERS Safety Report 23249258 (Version 2)
Quarter: 2023Q4

REPORT INFORMATION
  Report Type: Spontaneous
  Country: IT (occurrence: IT)
  Receive Date: 20231201
  Receipt Date: 20231204
  Transmission Date: 20240110
  Serious: Yes (Hospitalization, Other)
  Sender: FDA-Public Use
  Company Number: IT-AUROBINDO-AUR-APL-2023-034610

PATIENT
  Age: 55 Year
  Sex: Male

DRUGS (3)
  1. CLOZAPINE [Suspect]
     Active Substance: CLOZAPINE
     Indication: Schizophrenia
     Dosage: 500 MILLIGRAM, ONCE A DAY
     Route: 065
  2. LAMOTRIGINE [Suspect]
     Active Substance: LAMOTRIGINE
     Indication: Schizophrenia
     Dosage: 200 MILLIGRAM, ONCE A DAY
     Route: 065
  3. ZUCLOPENTHIXOL DECANOATE [Suspect]
     Active Substance: ZUCLOPENTHIXOL DECANOATE
     Indication: Schizophrenia
     Dosage: 200 MILLIGRAM, EVERY 4 WEEKS
     Route: 065

REACTIONS (7)
  - Hallucination, auditory [Recovering/Resolving]
  - Delusion [Recovered/Resolved]
  - Intentional product misuse [Recovering/Resolving]
  - Treatment noncompliance [Recovering/Resolving]
  - Condition aggravated [Recovering/Resolving]
  - Therapy partial responder [Unknown]
  - Off label use [Recovered/Resolved]
